FAERS Safety Report 5047820-0 (Version None)
Quarter: 2006Q3

REPORT INFORMATION
  Report Type: 
  Country: None (occurrence: None)
  Receive Date: 20060710
  Receipt Date: 20060710
  Transmission Date: 20061208
  Serious: Yes (Hospitalization)
  Sender: FDA-Public Use
  Company Number: None

PATIENT
  Age: 85 Year
  Sex: Male
  Weight: 90 kg

DRUGS (11)
  1. METOPROLOL SUCCINATE [Suspect]
     Indication: ATRIAL FIBRILLATION
     Dosage: 75 MG -1+ 1/2 TAB- BID PO
     Route: 048
     Dates: start: 20060523, end: 20060526
  2. ALBUT/IPRATROP-COMBIVENT [Concomitant]
  3. ASPIRIN [Concomitant]
  4. CIPROFLOXACIN HCL [Concomitant]
  5. GLIPIZIDE [Concomitant]
  6. GUAIFENESIN [Concomitant]
  7. LISINOPRIL [Concomitant]
  8. METFORMIN HYDROCHLORIDE [Concomitant]
  9. METOPROLOL TARTRATE [Concomitant]
  10. MOMETASONE FUROATE [Concomitant]
  11. PRAZOSIN HCL [Concomitant]

REACTIONS (1)
  - DYSPNOEA [None]
